FAERS Safety Report 6266842-5 (Version None)
Quarter: 2009Q3

REPORT INFORMATION
  Report Type: 
  Country: None (occurrence: None)
  Receive Date: 20090710
  Receipt Date: 20090710
  Transmission Date: 20100115
  Serious: Yes (Life-Threatening, Hospitalization)
  Sender: FDA-Public Use
  Company Number: None

PATIENT
  Sex: Female
  Weight: 83.9154 kg

DRUGS (2)
  1. AMBIEN CR [Suspect]
     Indication: DEATH OF RELATIVE
     Dosage: ONE 12.5MG ONLY TOOK 1 ORAL -DIRECTIONS- (+) 20-30 MIN BEFORE BEDTIME
     Route: 048
     Dates: start: 20071207
  2. AMBIEN CR [Suspect]
     Indication: INSOMNIA
     Dosage: ONE 12.5MG ONLY TOOK 1 ORAL -DIRECTIONS- (+) 20-30 MIN BEFORE BEDTIME
     Route: 048
     Dates: start: 20071207

REACTIONS (4)
  - AMNESIA [None]
  - IMPAIRED DRIVING ABILITY [None]
  - IMPRISONMENT [None]
  - ROAD TRAFFIC ACCIDENT [None]
